FAERS Safety Report 13742152 (Version 2)
Quarter: 2017Q3

REPORT INFORMATION
  Report Type: Spontaneous
  Country: US (occurrence: US)
  Receive Date: 20170711
  Receipt Date: 20170816
  Transmission Date: 20171127
  Serious: Yes (Other)
  Sender: FDA-Public Use
  Company Number: US-BAYER-2017-126978

PATIENT
  Age: 65 Year
  Sex: Male
  Weight: 59 kg

DRUGS (1)
  1. ALEVE [Suspect]
     Active Substance: NAPROXEN SODIUM
     Indication: PAIN
     Dosage: 1 OR 2 DF, PRN
     Route: 048
     Dates: end: 20170621

REACTIONS (12)
  - Syncope [Unknown]
  - Gastric ulcer haemorrhage [None]
  - Adverse event [Unknown]
  - Flatulence [Unknown]
  - Haematochezia [None]
  - Gastric ulcer [Not Recovered/Not Resolved]
  - Contusion [Unknown]
  - Chronic kidney disease [Unknown]
  - Oedema [Unknown]
  - Asthenia [None]
  - Head injury [Unknown]
  - Peripheral swelling [Not Recovered/Not Resolved]

NARRATIVE: CASE EVENT DATE: 20170623
